FAERS Safety Report 11424964 (Version 2)
Quarter: 2015Q3

REPORT INFORMATION
  Report Type: Spontaneous
  Country: US (occurrence: US)
  Receive Date: 20150821
  Receipt Date: 20150903
  Transmission Date: 20151125
  Serious: No
  Sender: FDA-Public Use
  Company Number: US-ELI_LILLY_AND_COMPANY-US201104005499

PATIENT
  Age: 74 Year
  Sex: Male

DRUGS (8)
  1. HUMULIN 70/30 [Suspect]
     Active Substance: INSULIN HUMAN
     Indication: DIABETES MELLITUS
     Dosage: 22 U, EACH MORNING
     Dates: start: 201004, end: 20110404
  2. HUMULIN 70/30 [Suspect]
     Active Substance: INSULIN HUMAN
     Dosage: 21 U, EACH EVENING
     Dates: start: 201004, end: 20110404
  3. NOVOLOG [Concomitant]
     Active Substance: INSULIN ASPART
  4. HUMULIN 70/30 [Suspect]
     Active Substance: INSULIN HUMAN
     Dosage: 21 U, EACH EVENING
     Dates: start: 201004, end: 20110404
  5. HUMALOG MIX75/25 [Suspect]
     Active Substance: INSULIN LISPRO
     Indication: DIABETES MELLITUS
     Dosage: 22 U, EACH MORNING
     Dates: start: 201102
  6. HUMULIN 70/30 [Suspect]
     Active Substance: INSULIN HUMAN
     Dosage: 22 U, EACH MORNING
     Dates: start: 201004, end: 20110404
  7. NOVOLIN 70/30 [Concomitant]
     Active Substance: INSULIN HUMAN
  8. HUMALOG MIX75/25 [Suspect]
     Active Substance: INSULIN LISPRO
     Dosage: 21 U, EACH EVENING
     Dates: start: 201102

REACTIONS (4)
  - Blood glucose increased [Unknown]
  - Colour blindness [Not Recovered/Not Resolved]
  - Blood glucose decreased [Unknown]
  - Drug dispensing error [Unknown]

NARRATIVE: CASE EVENT DATE: 20110404
